FAERS Safety Report 14671782 (Version 1)
Quarter: 2018Q1

REPORT INFORMATION
  Report Type: Spontaneous
  Country: US (occurrence: US)
  Receive Date: 20180323
  Receipt Date: 20180323
  Transmission Date: 20180509
  Serious: No
  Sender: FDA-Public Use
  Company Number: US-SUN PHARMACEUTICAL INDUSTRIES LTD-2018US-161678

PATIENT
  Sex: Female

DRUGS (1)
  1. METFORMIN [Suspect]
     Active Substance: METFORMIN HYDROCHLORIDE
     Indication: DIABETES MELLITUS
     Dosage: 4 DF, DAILY
     Route: 065
     Dates: start: 2017

REACTIONS (3)
  - Product substitution issue [Unknown]
  - Muscle spasms [Not Recovered/Not Resolved]
  - Pruritus generalised [Not Recovered/Not Resolved]
